APPROVED DRUG PRODUCT: THEO-DUR
Active Ingredient: THEOPHYLLINE
Strength: 450MG
Dosage Form/Route: TABLET, EXTENDED RELEASE;ORAL
Application: A089131 | Product #001
Applicant: SCHERING CORP
Approved: Jun 25, 1986 | RLD: No | RS: No | Type: DISCN